FAERS Safety Report 19515251 (Version 9)
Quarter: 2022Q2

REPORT INFORMATION
  Report Type: Report from Study
  Country: US (occurrence: US)
  Receive Date: 20210709
  Receipt Date: 20220603
  Transmission Date: 20220721
  Serious: Yes (Hospitalization, Other)
  Sender: FDA-Public Use
  Company Number: US-ABBVIE-21P-163-3973376-00

PATIENT
  Age: 77 Year
  Sex: Male
  Weight: 72 kg

DRUGS (50)
  1. VENETOCLAX [Suspect]
     Active Substance: VENETOCLAX
     Indication: Acute myeloid leukaemia
     Route: 048
     Dates: start: 20210416, end: 20210416
  2. VENETOCLAX [Suspect]
     Active Substance: VENETOCLAX
     Route: 048
     Dates: start: 20210528, end: 20210603
  3. VENETOCLAX [Suspect]
     Active Substance: VENETOCLAX
     Route: 048
     Dates: start: 20210604, end: 20210604
  4. VENETOCLAX [Suspect]
     Active Substance: VENETOCLAX
     Route: 048
     Dates: start: 20210608, end: 20210611
  5. VENETOCLAX [Suspect]
     Active Substance: VENETOCLAX
     Route: 048
     Dates: start: 20210612
  6. CC-90009 (DI-SUBSTITUTED ISOINDOLINONE) [Concomitant]
     Indication: Acute myeloid leukaemia
     Route: 042
     Dates: start: 20210419, end: 20210419
  7. CC-90009 (DI-SUBSTITUTED ISOINDOLINONE) [Concomitant]
     Route: 042
     Dates: start: 20210602, end: 20210602
  8. AZACITIDINE [Concomitant]
     Active Substance: AZACITIDINE
     Indication: Acute myeloid leukaemia
     Dosage: INJECTION, POWER, LYOPHILIZED, FOR SOLUTION
     Route: 042
     Dates: start: 20210416, end: 20210416
  9. AZACITIDINE [Concomitant]
     Active Substance: AZACITIDINE
     Dosage: INJECTION, POWER, LYOPHILIZED, FOR SOLUTION
     Route: 042
     Dates: start: 20210604, end: 20210604
  10. ASPIRIN [Concomitant]
     Active Substance: ASPIRIN
     Indication: Prophylaxis
     Route: 048
     Dates: start: 20080730
  11. ACYCLOVIR [Concomitant]
     Active Substance: ACYCLOVIR
     Indication: Prophylaxis
     Route: 048
     Dates: start: 20210318
  12. ATORVASTATIN [Concomitant]
     Active Substance: ATORVASTATIN
     Indication: Hyperlipidaemia
     Route: 048
     Dates: start: 20120313
  13. LEVOFLOXACIN [Concomitant]
     Active Substance: LEVOFLOXACIN
     Indication: Prophylaxis
     Route: 048
     Dates: start: 20210428
  14. ONDANSETRON [Concomitant]
     Active Substance: ONDANSETRON
     Indication: Adverse event
     Route: 048
     Dates: start: 20210529, end: 20210529
  15. ONDANSETRON [Concomitant]
     Active Substance: ONDANSETRON
     Indication: Prophylaxis
     Route: 048
     Dates: start: 20210530, end: 20210530
  16. ONDANSETRON [Concomitant]
     Active Substance: ONDANSETRON
     Route: 048
     Dates: start: 20210531, end: 20210531
  17. ONDANSETRON [Concomitant]
     Active Substance: ONDANSETRON
     Route: 048
     Dates: start: 20210601, end: 20210601
  18. ONDANSETRON [Concomitant]
     Active Substance: ONDANSETRON
     Route: 048
     Dates: start: 20210601, end: 20210601
  19. ONDANSETRON [Concomitant]
     Active Substance: ONDANSETRON
     Route: 048
     Dates: start: 20210602, end: 20210602
  20. ONDANSETRON [Concomitant]
     Active Substance: ONDANSETRON
     Route: 042
     Dates: start: 20210602, end: 20210602
  21. ONDANSETRON [Concomitant]
     Active Substance: ONDANSETRON
     Route: 048
     Dates: start: 20210603, end: 20210603
  22. ONDANSETRON [Concomitant]
     Active Substance: ONDANSETRON
     Route: 048
     Dates: start: 20210604, end: 20210604
  23. ONDANSETRON [Concomitant]
     Active Substance: ONDANSETRON
     Route: 042
     Dates: start: 20210624, end: 20210624
  24. ONDANSETRON [Concomitant]
     Active Substance: ONDANSETRON
     Route: 042
     Dates: start: 20210626
  25. POTASSIUM CHLORIDE [Concomitant]
     Active Substance: POTASSIUM CHLORIDE
     Indication: Prophylaxis
     Route: 048
     Dates: start: 20210608
  26. CALCITRIOL [Concomitant]
     Active Substance: CALCITRIOL
     Indication: Prophylaxis
     Route: 048
     Dates: start: 20210519
  27. CALCIUM CARBONATE [Concomitant]
     Active Substance: CALCIUM CARBONATE
     Indication: Prophylaxis
     Route: 048
     Dates: start: 20210524
  28. CHOLECALCIFEROL [Concomitant]
     Active Substance: CHOLECALCIFEROL
     Indication: Prophylaxis
     Route: 048
     Dates: start: 20210519
  29. ENOXAPARIN [Concomitant]
     Active Substance: ENOXAPARIN
     Indication: Prophylaxis
     Route: 058
     Dates: start: 20210524
  30. SODIUM CHLORIDE BOLUS [Concomitant]
     Indication: Fluid replacement
     Dates: start: 20210529, end: 20210529
  31. SODIUM CHLORIDE BOLUS [Concomitant]
     Indication: Adverse event
     Dates: start: 20210530, end: 20210530
  32. SODIUM CHLORIDE BOLUS [Concomitant]
     Dates: start: 20210624, end: 20210624
  33. CEFDINIR [Concomitant]
     Active Substance: CEFDINIR
     Indication: Prophylaxis
     Route: 048
     Dates: start: 20210528
  34. MICAFUNGIN [Concomitant]
     Active Substance: MICAFUNGIN
     Indication: Prophylaxis
     Route: 042
     Dates: start: 20210604
  35. FLUCONAZOLE [Concomitant]
     Active Substance: FLUCONAZOLE
     Indication: Prophylaxis
     Route: 048
     Dates: start: 20210528, end: 20210603
  36. FLUCONAZOLE [Concomitant]
     Active Substance: FLUCONAZOLE
     Route: 048
     Dates: start: 20210611, end: 20210628
  37. FLUCONAZOLE [Concomitant]
     Active Substance: FLUCONAZOLE
     Route: 048
     Dates: start: 20210707
  38. MAGNESIUM OXIDE [Concomitant]
     Active Substance: MAGNESIUM OXIDE
     Indication: Prophylaxis
     Route: 048
     Dates: start: 20210608
  39. SODIUM PHOSPHATE-POTASSIUM PHOSPHATE [Concomitant]
     Indication: Nutritional supplementation
     Route: 048
     Dates: start: 20210608
  40. SODIUM PHOSPHATE-POTASSIUM PHOSPHATE [Concomitant]
     Indication: Prophylaxis
     Route: 048
     Dates: start: 20210627
  41. ACETAMINOPHEN [Concomitant]
     Active Substance: ACETAMINOPHEN
     Indication: Prophylaxis
     Route: 048
     Dates: start: 20210617
  42. ACETAMINOPHEN [Concomitant]
     Active Substance: ACETAMINOPHEN
     Indication: Adverse event
     Route: 048
     Dates: start: 20210617
  43. ACETAMINOPHEN [Concomitant]
     Active Substance: ACETAMINOPHEN
     Route: 048
     Dates: start: 20210624, end: 20210624
  44. ACETAMINOPHEN [Concomitant]
     Active Substance: ACETAMINOPHEN
     Route: 048
     Dates: start: 20210624
  45. ACETAMINOPHEN [Concomitant]
     Active Substance: ACETAMINOPHEN
     Route: 048
     Dates: start: 20210625
  46. ALBUTEROL [Concomitant]
     Active Substance: ALBUTEROL
     Indication: Prophylaxis
     Route: 055
     Dates: start: 20210627
  47. MAGNESIUM SULFATE [Concomitant]
     Active Substance: MAGNESIUM SULFATE
     Indication: Prophylaxis
     Route: 042
     Dates: start: 20210626
  48. CIPROFLOXACIN [Concomitant]
     Active Substance: CIPROFLOXACIN
     Indication: Prophylaxis
     Route: 048
     Dates: start: 20210708
  49. METOPROLOL [Concomitant]
     Active Substance: METOPROLOL
     Indication: Hypertension
     Route: 048
     Dates: start: 20210708
  50. POTASSIUM CHLORIDE [Concomitant]
     Active Substance: POTASSIUM CHLORIDE
     Indication: Prophylaxis
     Route: 042
     Dates: start: 20210626

REACTIONS (1)
  - Enterobacter sepsis [Recovered/Resolved]

NARRATIVE: CASE EVENT DATE: 20210624
